FAERS Safety Report 24136996 (Version 1)
Quarter: 2024Q3

REPORT INFORMATION
  Report Type: Spontaneous
  Country: US (occurrence: US)
  Receive Date: 20240725
  Receipt Date: 20240725
  Transmission Date: 20241016
  Serious: Yes (Other)
  Sender: DR REDDYS
  Company Number: US-E2BLSMVVAL-SPO/USA/24/0010771

PATIENT
  Sex: Male

DRUGS (1)
  1. CARBOPROST TROMETHAMINE [Suspect]
     Active Substance: CARBOPROST TROMETHAMINE
     Indication: Product used for unknown indication
     Route: 065

REACTIONS (7)
  - Pancreatitis [Unknown]
  - Bacteraemia [Unknown]
  - Pyrexia [Unknown]
  - Diarrhoea [Unknown]
  - Nasopharyngitis [Unknown]
  - Fatigue [Unknown]
  - Rash [Unknown]
